FAERS Safety Report 4385004-X (Version None)
Quarter: 2004Q2

REPORT INFORMATION
  Report Type: 
  Country: None (occurrence: None)
  Receive Date: 20040623
  Receipt Date: 20040623
  Transmission Date: 20050107
  Serious: No
  Sender: FDA-Public Use
  Company Number: None

PATIENT
  Age: 50 Year
  Sex: Female

DRUGS (1)
  1. MORPHINE [Suspect]
     Indication: POST PROCEDURAL PAIN
     Dosage: 4 MG IV EVERY 10 MINUTES  X 5 DOSES THEN PCA
     Route: 042
     Dates: start: 20040519

REACTIONS (2)
  - POST PROCEDURAL COMPLICATION [None]
  - RESPIRATORY ARREST [None]
